FAERS Safety Report 22244845 (Version 1)
Quarter: 2023Q2

REPORT INFORMATION
  Report Type: Spontaneous
  Country: FR (occurrence: FR)
  Receive Date: 20230424
  Receipt Date: 20230424
  Transmission Date: 20230721
  Serious: Yes (Life-Threatening)
  Sender: FDA-Public Use
  Company Number: None

PATIENT
  Age: 66 Year
  Sex: Male
  Weight: 100 kg

DRUGS (6)
  1. LIDOCAINE HYDROCHLORIDE [Suspect]
     Active Substance: LIDOCAINE HYDROCHLORIDE
     Indication: Induction of anaesthesia
     Dosage: ROA-20045000
     Route: 042
     Dates: start: 20230213, end: 20230213
  2. ATRACURIUM BESYLATE [Suspect]
     Active Substance: ATRACURIUM BESYLATE
     Indication: Induction of anaesthesia
     Dosage: ROA-20045000
     Route: 042
     Dates: start: 20230213, end: 20230213
  3. PROPOFOL LIPURO [Suspect]
     Active Substance: PROPOFOL
     Indication: Induction of anaesthesia
     Dosage: ROA-20045000
     Route: 042
     Dates: start: 20230213, end: 20230213
  4. SUFENTANIL CITRATE [Suspect]
     Active Substance: SUFENTANIL CITRATE
     Indication: Induction of anaesthesia
     Dosage: ROA-20045000
     Route: 042
     Dates: start: 20230213, end: 20230213
  5. KETAMINE [Suspect]
     Active Substance: KETAMINE
     Indication: Induction of anaesthesia
     Dosage: ROA-20045000
     Route: 042
     Dates: start: 20230213, end: 20230213
  6. CEFAZOLIN SODIUM [Suspect]
     Active Substance: CEFAZOLIN SODIUM
     Indication: Infection prophylaxis
     Dosage: ROA-20045000
     Route: 042
     Dates: start: 20230213, end: 20230213

REACTIONS (2)
  - Bronchospasm [Recovered/Resolved]
  - Haemodynamic instability [Recovered/Resolved]

NARRATIVE: CASE EVENT DATE: 20230213
